FAERS Safety Report 14415873 (Version 1)
Quarter: 2018Q1

REPORT INFORMATION
  Report Type: Report from Study
  Country: IE (occurrence: IE)
  Receive Date: 20180122
  Receipt Date: 20180122
  Transmission Date: 20180509
  Serious: Yes (Death, Other)
  Sender: FDA-Public Use
  Company Number: IE-AMGEN-IRLSL2018008540

PATIENT
  Age: 91 Year
  Sex: Female

DRUGS (9)
  1. ARANESP [Suspect]
     Active Substance: DARBEPOETIN ALFA
     Indication: CHRONIC KIDNEY DISEASE
     Dosage: 40 MUG, Q2WK
     Route: 058
     Dates: start: 20170703
  2. ONE ALPHA [Concomitant]
     Active Substance: ALFACALCIDOL
     Dosage: 0.25 MG, QD
     Route: 050
  3. CALCICHEW [Concomitant]
     Active Substance: CALCIUM CARBONATE
     Dosage: 500 MG, QD
     Route: 050
  4. DOXAZOCIN [Concomitant]
     Active Substance: DOXAZOSIN MESYLATE
     Dosage: 4 MG, QD
     Route: 050
  5. BURINEX [Concomitant]
     Active Substance: BUMETANIDE
     Dosage: 1 MG, QD
     Route: 050
  6. GALFER [Concomitant]
     Active Substance: IRON
     Dosage: 10 ML, QD
  7. INNOVACE [Concomitant]
     Dosage: 20 MG, QD
  8. WARFARIN [Concomitant]
     Active Substance: WARFARIN
     Dosage: 3 MG, CONTINUING
     Route: 050
  9. SIMVASTATIN. [Concomitant]
     Active Substance: SIMVASTATIN
     Dosage: 20 MG, QHS
     Route: 050

REACTIONS (1)
  - Death [Fatal]

NARRATIVE: CASE EVENT DATE: 201712
